FAERS Safety Report 9003840 (Version 1)
Quarter: 2013Q1

REPORT INFORMATION
  Report Type: Spontaneous
  Country: US (occurrence: US)
  Receive Date: 20130108
  Receipt Date: 20130108
  Transmission Date: 20140127
  Serious: No
  Sender: FDA-Public Use
  Company Number: US-GLAXOSMITHKLINE-A0991993A

PATIENT
  Age: 83 Year
  Sex: Female

DRUGS (6)
  1. LOVAZA [Suspect]
     Indication: PRODUCT USED FOR UNKNOWN INDICATION
     Dosage: 1CAP THREE TIMES PER DAY
     Route: 048
  2. LOVENOX [Concomitant]
  3. COUMADIN [Concomitant]
  4. NEURONTIN [Concomitant]
  5. ANTI-HYPERTENSIVE [Concomitant]
  6. UNKNOWN DRUG FOR ANXIETY [Concomitant]

REACTIONS (1)
  - International normalised ratio abnormal [Unknown]
